FAERS Safety Report 5811268-9 (Version None)
Quarter: 2008Q3

REPORT INFORMATION
  Report Type: 
  Country: None (occurrence: None)
  Receive Date: 20080710
  Receipt Date: 20080625
  Transmission Date: 20090109
  Serious: Yes (Hospitalization)
  Sender: FDA-Public Use
  Company Number: IDA-00038

PATIENT
  Age: 32 Year
  Sex: Male

DRUGS (1)
  1. AVLOCARDYL (PROPRANOLOL), STRENGTH(S): 40 MG [Suspect]
     Dosage: 2000 MG ONCE PO, FORMULATION: TABL
     Route: 048
     Dates: start: 20080407, end: 20080407

REACTIONS (2)
  - ABDOMINAL PAIN UPPER [None]
  - INCORRECT DOSE ADMINISTERED [None]
